FAERS Safety Report 15077627 (Version 2)
Quarter: 2018Q2

REPORT INFORMATION
  Report Type: Spontaneous
  Country: US (occurrence: US)
  Receive Date: 20180627
  Receipt Date: 20180628
  Transmission Date: 20180711
  Serious: Yes (Other)
  Sender: FDA-Public Use
  Company Number: US-ENDO PHARMACEUTICALS INC-2018-039902

PATIENT
  Sex: Male

DRUGS (1)
  1. AVEED [Suspect]
     Active Substance: TESTOSTERONE UNDECANOATE
     Indication: TESTICULAR FAILURE
     Dosage: 750 MG, ONCE EVERY 10WK
     Route: 030
     Dates: start: 20161031, end: 20180604

REACTIONS (5)
  - Orthostatic hypotension [Unknown]
  - Seizure [Unknown]
  - Blood pressure fluctuation [Unknown]
  - Syncope [Unknown]
  - Head injury [Unknown]
